FAERS Safety Report 9375428 (Version 1)
Quarter: 2013Q2

REPORT INFORMATION
  Report Type: Spontaneous
  Country: CA (occurrence: CA)
  Receive Date: 20130628
  Receipt Date: 20130628
  Transmission Date: 20140414
  Serious: Yes (Death)
  Sender: FDA-Public Use
  Company Number: CA-AMGEN-CANSP2013045418

PATIENT
  Age: 64 Year
  Sex: Female

DRUGS (1)
  1. NEUPOGEN [Suspect]
     Indication: LUNG NEOPLASM MALIGNANT
     Dosage: 1ML/300MCG
     Route: 065
     Dates: start: 20110414

REACTIONS (1)
  - Death [Fatal]
